FAERS Safety Report 7387371-1 (Version None)
Quarter: 2011Q1

REPORT INFORMATION
  Report Type: 
  Country: None (occurrence: None)
  Receive Date: 20110331
  Receipt Date: 20110318
  Transmission Date: 20110831
  Serious: Yes (Other)
  Sender: FDA-Public Use
  Company Number: PHHY2011US21260

PATIENT
  Sex: Female

DRUGS (2)
  1. GILENYA [Suspect]
     Dosage: 0.5 MG, QD
     Route: 048
     Dates: start: 20110215
  2. FAMPRIDINE [Suspect]
     Dosage: 10 G, BID
     Route: 048

REACTIONS (5)
  - MUSCLE RIGIDITY [None]
  - DYSKINESIA [None]
  - LOSS OF CONSCIOUSNESS [None]
  - CATAPLEXY [None]
  - GRAND MAL CONVULSION [None]
